FAERS Safety Report 7451087-3 (Version None)
Quarter: 2011Q2

REPORT INFORMATION
  Report Type: 
  Country: None (occurrence: None)
  Receive Date: 20110429
  Receipt Date: 20110429
  Transmission Date: 20111010
  Serious: Yes (Hospitalization)
  Sender: FDA-Public Use
  Company Number: None

PATIENT
  Age: 65 Year
  Sex: Male
  Weight: 131 kg

DRUGS (2)
  1. SULFAMETHOXAZOLE TRIMETHOPRIM [Suspect]
     Indication: VASCULAR OPERATION
     Dosage: 160 MG BID PO
     Route: 048
     Dates: start: 20110422, end: 20110427
  2. WARFARIN SODIUM [Suspect]
     Indication: ATRIAL FIBRILLATION
     Dosage: 1 MG EVERY DAY PO
     Route: 048
     Dates: start: 20060811

REACTIONS (4)
  - WOUND HAEMORRHAGE [None]
  - GRANULOMA [None]
  - DECREASED APPETITE [None]
  - INTERNATIONAL NORMALISED RATIO INCREASED [None]
